FAERS Safety Report 21467330 (Version 9)
Quarter: 2024Q1

REPORT INFORMATION
  Report Type: Spontaneous
  Country: AT (occurrence: AT)
  Receive Date: 20221017
  Receipt Date: 20240305
  Transmission Date: 20240410
  Serious: Yes (Hospitalization, Other)
  Sender: FDA-Public Use
  Company Number: AT-ROCHE-3017431

PATIENT
  Age: 48 Year
  Sex: Female
  Weight: 58 kg

DRUGS (73)
  1. PACLITAXEL [Suspect]
     Active Substance: PACLITAXEL
     Indication: HER2 positive breast cancer
     Dosage: 1 TIMES IN 3 WEEK
     Route: 042
     Dates: start: 20190724, end: 20190912
  2. ADO-TRASTUZUMAB EMTANSINE [Suspect]
     Active Substance: ADO-TRASTUZUMAB EMTANSINE
     Indication: HER2 positive breast cancer
     Dosage: 1 TIMES IN 3 WEEK?FORM OF ADMIN. INTRAVENOUS INFUSION
     Route: 042
     Dates: start: 20200703, end: 20200703
  3. ADO-TRASTUZUMAB EMTANSINE [Suspect]
     Active Substance: ADO-TRASTUZUMAB EMTANSINE
     Dosage: 1 TIMES IN 3 WEEK?FORM OF ADMIN. INTRAVENOUS INFUSION
     Route: 042
     Dates: start: 20191014, end: 20200518
  4. TRASTUZUMAB [Suspect]
     Active Substance: TRASTUZUMAB
     Indication: HER2 positive breast cancer
     Dosage: 1 TIMES IN 3 WEEK?FORM OF ADMIN. INTRAVENOUS INFUSION
     Route: 042
     Dates: start: 20190724, end: 20190912
  5. TRASTUZUMAB [Suspect]
     Active Substance: TRASTUZUMAB
     Dosage: 1 TIMES IN 3 WEEK?FORM OF ADMIN. INTRAVENOUS INFUSION
     Route: 042
     Dates: end: 20230206
  6. TUCATINIB [Suspect]
     Active Substance: TUCATINIB
     Indication: Product used for unknown indication
     Dosage: MOST RECENT DOSE PRIOR TO THE EVENT: 22/JAN/2023
     Route: 048
  7. TUCATINIB [Suspect]
     Active Substance: TUCATINIB
     Dosage: MOST RECENT DOSE PRIOR TO THE EVENT: 22/JAN/2023?FORM: ORAL
  8. LAPATINIB [Suspect]
     Active Substance: LAPATINIB
     Indication: HER2 positive breast cancer
     Dosage: MOST RECENT DOSE PRIOR TO THE EVENT: 09/JAN/2021?250 MG, 5 TIMES DAILY
     Route: 048
     Dates: start: 20200923, end: 20201228
  9. LAPATINIB [Suspect]
     Active Substance: LAPATINIB
     Dosage: 4 TIMES IN 1 DAY?ROUTE: ORAL
     Dates: end: 20211216
  10. LAPATINIB [Suspect]
     Active Substance: LAPATINIB
     Dosage: 4 TIMES IN 1 DAY?ROUTE: ORAL
     Dates: end: 20211216
  11. PERTUZUMAB [Suspect]
     Active Substance: PERTUZUMAB
     Indication: HER2 positive breast cancer
     Dosage: 1 TIMES IN 3 WEEKS?FORM OF ADMIN. INTRAVENOUS INFUSION
     Route: 042
     Dates: start: 20190724, end: 20190912
  12. FAM-TRASTUZUMAB DERUXTECAN-NXKI [Suspect]
     Active Substance: FAM-TRASTUZUMAB DERUXTECAN-NXKI
     Indication: HER2 positive breast cancer
     Dosage: 3.2 MILLIGRAM(S)/KILOGRAM(MG/KG)?ROUTE: INTRAVENOUS
     Route: 042
     Dates: end: 20220324
  13. FAM-TRASTUZUMAB DERUXTECAN-NXKI [Suspect]
     Active Substance: FAM-TRASTUZUMAB DERUXTECAN-NXKI
     Dosage: 4.4 MILLIGRAM(S)/KILOGRAM(MG/KG?ROUTE: INTRAVENOUS
  14. FAM-TRASTUZUMAB DERUXTECAN-NXKI [Suspect]
     Active Substance: FAM-TRASTUZUMAB DERUXTECAN-NXKI
     Dosage: MOST RECENT DOSE PRIOR TO AE 31/JAN/2022?1 TIMES IN 3 WEEK?ROUTE: INTRAVENOUS?5.4 MG/KG
     Dates: end: 20220131
  15. CAPECITABINE [Suspect]
     Active Substance: CAPECITABINE
     Indication: HER2 positive breast cancer
     Dosage: 0.25 DAYS?ROUTE: ORAL?FORM: TABLET
     Dates: end: 20211209
  16. CAPECITABINE [Suspect]
     Active Substance: CAPECITABINE
     Dosage: 500 MG, FREQUENCY: OTHER SIX TIMES A DAY FOR 14 DAYS, 7 DAYS BREAK?FORM: TABLET?ROUTE: ORAL
     Dates: start: 20200923, end: 20201220
  17. LACTULOSE [Concomitant]
     Active Substance: LACTULOSE
     Indication: Product used for unknown indication
     Dosage: ROUTE: UNK
  18. ALPRAZOLAM [Concomitant]
     Active Substance: ALPRAZOLAM
     Indication: Product used for unknown indication
     Dosage: PRN?FORM OF ADMIN. TABLET (UNCOATED, ORAL)
     Route: 048
     Dates: start: 20190715
  19. LENDORM [Concomitant]
     Active Substance: BROTIZOLAM
     Indication: Insomnia
     Dosage: PRN?FORM OF ADMIN. TABLET (UNCOATED, ORAL)
     Route: 048
     Dates: start: 20211229, end: 20211229
  20. CITALOPRAM [Concomitant]
     Active Substance: CITALOPRAM HYDROBROMIDE
     Indication: Product used for unknown indication
     Dosage: ONGOING = CHECKED?FORM OF ADMIN. TABLET (UNCOATED, ORAL)
     Route: 048
     Dates: start: 20190715
  21. POLYETHYLENE GLYCOL 4000 [Concomitant]
     Active Substance: POLYETHYLENE GLYCOL 4000
     Indication: Product used for unknown indication
     Dosage: ONGOING = CHECKED?FORM OF ADMIN. ORAL SOLUTION
     Route: 048
     Dates: start: 20190705
  22. FILGRASTIM [Concomitant]
     Active Substance: FILGRASTIM
     Indication: Product used for unknown indication
     Route: 065
     Dates: start: 20220420, end: 20220421
  23. PFIZER-BIONTECH COVID-19 VACCINE [Concomitant]
     Active Substance: TOZINAMERAN
     Indication: Product used for unknown indication
     Dosage: ROUTE; UNK
     Dates: start: 20220125, end: 20220125
  24. AMOXICILLIN\CLAVULANATE POTASSIUM [Concomitant]
     Active Substance: AMOXICILLIN\CLAVULANATE POTASSIUM
     Indication: Influenza
     Dosage: 2 TIMES IN 1 DAY?FORM OF ADMIN. TABLET (UNCOATED, ORAL)
     Route: 048
     Dates: start: 20200527, end: 20200602
  25. ZOFRAN [Concomitant]
     Active Substance: ONDANSETRON HYDROCHLORIDE
     Indication: COVID-19
     Dosage: PRN
     Route: 042
     Dates: start: 20190704, end: 20200703
  26. ZOFRAN [Concomitant]
     Active Substance: ONDANSETRON HYDROCHLORIDE
     Dosage: 2 TIMES IN 1 DAY?FORM OF ADMIN. TABLET (UNCOATED, ORAL)
     Route: 067
     Dates: start: 20190705, end: 20190914
  27. ZOFRAN [Concomitant]
     Active Substance: ONDANSETRON HYDROCHLORIDE
     Dosage: ONGOING = CHECKED?1 TIMES IN 3 WEEK
     Route: 042
     Dates: start: 20220110
  28. ZOFRAN [Concomitant]
     Active Substance: ONDANSETRON HYDROCHLORIDE
     Dosage: PRN?FORM OF ADMIN. TABLET (UNCOATED, ORAL)
     Route: 048
     Dates: start: 20190701
  29. ZOFRAN [Concomitant]
     Active Substance: ONDANSETRON HYDROCHLORIDE
     Dosage: ROUTE: ORAL
     Route: 048
     Dates: start: 20210302, end: 20210302
  30. DRONABINOL [Concomitant]
     Active Substance: DRONABINOL
     Indication: Product used for unknown indication
     Dosage: ONGOING = CHECKED?FORM OF ADMIN. ORAL SOLUTION
     Route: 048
     Dates: start: 20210705
  31. DRONABINOL [Concomitant]
     Active Substance: DRONABINOL
     Dosage: 2 DROP-2 DROP-2 DROP?FORM OF ADMIN. ORAL SOLUTION
     Route: 048
     Dates: start: 20190716, end: 20210804
  32. TRAZODONE HYDROCHLORIDE [Concomitant]
     Active Substance: TRAZODONE HYDROCHLORIDE
     Indication: Product used for unknown indication
     Dosage: FORM - TABLET (UNCOATED, ORAL)?ROUTE: ORAL
     Route: 048
     Dates: start: 20190716, end: 20200926
  33. NEULASTA [Concomitant]
     Active Substance: PEGFILGRASTIM
     Indication: Product used for unknown indication
     Dosage: ROUTE: UNK
     Dates: start: 20220420
  34. XGEVA [Concomitant]
     Active Substance: DENOSUMAB
     Indication: Product used for unknown indication
     Route: 065
     Dates: start: 20191011
  35. SUCRALAN [Concomitant]
     Indication: Product used for unknown indication
     Dosage: PRN?FORM OF ADMIN. ORAL SOLUTION
     Route: 048
     Dates: start: 20190701
  36. DEXAMETHASONE [Concomitant]
     Active Substance: DEXAMETHASONE
     Indication: COVID-19
     Dosage: ROUTE: INTRAVENOUS
     Dates: start: 20220110
  37. DEXAMETHASONE [Concomitant]
     Active Substance: DEXAMETHASONE
     Dosage: ROUTE: UNKNOWN
     Route: 065
     Dates: start: 20220113, end: 20220114
  38. DEXAMETHASONE [Concomitant]
     Active Substance: DEXAMETHASONE
     Dosage: ROUTE: UNKNOWN
     Dates: start: 20220111, end: 20220112
  39. DEXAMETHASONE [Concomitant]
     Active Substance: DEXAMETHASONE
     Dosage: ROUTE: UNK
     Dates: start: 20211229, end: 20220110
  40. DEXAMETHASONE [Concomitant]
     Active Substance: DEXAMETHASONE
     Dosage: ROUTE: ORAL
     Dates: start: 20220622
  41. DEXAMETHASONE [Concomitant]
     Active Substance: DEXAMETHASONE
     Dosage: ROUTE: INTRAVENOUS
     Dates: start: 20190704, end: 20190912
  42. DEXAMETHASONE [Concomitant]
     Active Substance: DEXAMETHASONE
     Dosage: FORM OF ADMIN. - TABLET (UNCOATED, ORAL)?ROUTE: ORAL
     Dates: start: 20210302, end: 20210304
  43. DEXAMETHASONE [Concomitant]
     Active Substance: DEXAMETHASONE
     Dosage: FORM OF ADMIN. - TABLET (UNCOATED, ORAL)?ROUTE: UNKNOWN
     Dates: start: 20190705, end: 20190914
  44. DEXAMETHASONE [Concomitant]
     Active Substance: DEXAMETHASONE
     Dosage: ROUTE: UNKNOWN
     Dates: start: 20220115, end: 20220323
  45. LEVOTHYROXINE SODIUM [Concomitant]
     Active Substance: LEVOTHYROXINE SODIUM
     Indication: Product used for unknown indication
     Dosage: ROUTE: UNK
  46. HYDROMORPHONE HYDROCHLORIDE [Concomitant]
     Active Substance: HYDROMORPHONE HYDROCHLORIDE
     Indication: Product used for unknown indication
     Dosage: PRN?FORM OF ADMIN. CAPSULE
     Route: 048
     Dates: start: 20190716, end: 20200927
  47. HYDROMORPHONE HYDROCHLORIDE [Concomitant]
     Active Substance: HYDROMORPHONE HYDROCHLORIDE
     Dosage: 2 TIMES IN 1 DAY?FORM OF ADMIN. CAPSULE
     Route: 048
     Dates: start: 20220207
  48. HYDROMORPHONE HYDROCHLORIDE [Concomitant]
     Active Substance: HYDROMORPHONE HYDROCHLORIDE
     Dosage: 2 TIMES IN 1 DAY?FORM OF ADMIN. CAPSULE
     Route: 048
     Dates: start: 20190716, end: 20200927
  49. ACETAMINOPHEN [Concomitant]
     Active Substance: ACETAMINOPHEN
     Indication: COVID-19
     Dosage: PRN (AS NEEDED)?FORM OF ADMIN. TABLET (UNCOATED, ORAL)
     Route: 048
     Dates: start: 20210302, end: 20210303
  50. CEOLAT [Concomitant]
     Indication: Product used for unknown indication
     Dosage: OTHER UP TO 3 X DAILY 10 ML?FORM OF ADMIN. ORAL SOLUTION
     Route: 048
     Dates: start: 20190815
  51. PANTOPRAZOLE SODIUM [Concomitant]
     Active Substance: PANTOPRAZOLE SODIUM
     Indication: COVID-19
     Dosage: ONGOING = CHECKED?FORM OF ADMIN. TABLET (UNCOATED, ORAL)
     Route: 048
     Dates: start: 20190701
  52. PANTOPRAZOLE SODIUM [Concomitant]
     Active Substance: PANTOPRAZOLE SODIUM
     Dosage: ONGOING = CHECKED
     Dates: start: 20210302, end: 20210303
  53. PANTOPRAZOLE SODIUM [Concomitant]
     Active Substance: PANTOPRAZOLE SODIUM
     Dosage: ONGOING = CHECKED?FORM OF ADMIN. TABLET (UNCOATED, ORAL)
     Route: 048
     Dates: start: 20210222, end: 20210302
  54. OLANZAPINE [Concomitant]
     Active Substance: OLANZAPINE
     Indication: Product used for unknown indication
     Dosage: OTHER 0-0-1/2?FORM OF ADMIN. TABLET (UNCOATED, ORAL)
     Route: 048
     Dates: start: 20190821, end: 20190904
  55. OLANZAPINE [Concomitant]
     Active Substance: OLANZAPINE
     Dosage: OTHER 0-0-1/2?FORM OF ADMIN. TABLET (UNCOATED, ORAL)
     Route: 048
     Dates: start: 20190904, end: 20200926
  56. VALACYCLOVIR HYDROCHLORIDE [Concomitant]
     Active Substance: VALACYCLOVIR HYDROCHLORIDE
     Indication: Product used for unknown indication
     Dosage: FORM OF ADMIN. - TABLET (UNCOATED, ORAL)?ROUTE: ORAL
     Dates: start: 20190716, end: 20191011
  57. EUTHYROX [Concomitant]
     Active Substance: LEVOTHYROXINE SODIUM
     Indication: Product used for unknown indication
     Dosage: FORM: TABLET (UNCOATED, ORAL) ?ROUTE: ORAL
     Dates: start: 20190703, end: 20200929
  58. EUTHYROX [Concomitant]
     Active Substance: LEVOTHYROXINE SODIUM
     Dosage: FORM: TABLET (UNCOATED, ORAL) ?ROUTE: ORAL
     Dates: end: 201906
  59. EUTHYROX [Concomitant]
     Active Substance: LEVOTHYROXINE SODIUM
     Dosage: FORM: TABLET (UNCOATED, ORAL) ?ROUTE: ORAL
     Dates: start: 20200930, end: 20210108
  60. URSODIOL [Concomitant]
     Active Substance: URSODIOL
     Indication: Gamma-glutamyltransferase increased
     Dosage: ROUTE: UNK
     Dates: start: 20220401
  61. ACETAMINOPHEN [Concomitant]
     Active Substance: ACETAMINOPHEN
     Indication: Product used for unknown indication
     Dosage: PRN?FORM: TABLET (UNCOATED, ORAL)
     Route: 048
     Dates: start: 20190701
  62. LOPERAMIDE HYDROCHLORIDE [Concomitant]
     Active Substance: LOPERAMIDE HYDROCHLORIDE
     Indication: Diarrhoea
     Dosage: PRN?FORM: TABLET (UNCOATED, ORAL)
     Route: 048
     Dates: start: 20210215
  63. FERRETAB [Concomitant]
     Indication: Product used for unknown indication
     Dosage: ROUTE: UNK
  64. LOVENOX [Concomitant]
     Active Substance: ENOXAPARIN SODIUM
     Indication: COVID-19
     Dosage: ROUTE: INTRAMUSCULAR
     Dates: start: 20210302, end: 20210305
  65. CALCIDURAN [ASCORBIC ACID;CALCIUM PHOSPHATE;CITRIC ACID;COLECALCIFEROL [Concomitant]
     Indication: Product used for unknown indication
     Dosage: ONGOING = CHECKED?ROUTE; ORAL?FORM: TABLET
     Dates: start: 20190717
  66. UNASYN [Concomitant]
     Active Substance: AMPICILLIN SODIUM\SULBACTAM SODIUM
     Indication: Product used for unknown indication
     Dosage: ROUTE: UNK
     Dates: start: 20220919
  67. EMEND [Concomitant]
     Active Substance: APREPITANT
     Indication: Product used for unknown indication
     Dosage: ROUTE; ORAL
     Dates: start: 20220621
  68. EMEND [Concomitant]
     Active Substance: APREPITANT
     Dosage: ROUTE: ORAL
     Dates: start: 20220621
  69. ORNITHINE ASPARTATE [Concomitant]
     Active Substance: ORNITHINE ASPARTATE
     Indication: Product used for unknown indication
     Dosage: ROUTE: UNK
  70. NEURONTIN [Concomitant]
     Active Substance: GABAPENTIN
     Indication: Product used for unknown indication
     Dosage: 2 TIMES IN 1 DAY?FORM- TABLET (UNCOATED, ORAL)?ROUTE: ORAL
     Dates: start: 201908, end: 201908
  71. LOVENOX [Concomitant]
     Active Substance: ENOXAPARIN SODIUM
     Indication: COVID-19
     Dosage: 40 MG?DAILY DOSE 40 MG?FREQUENCY 1?FREQUENCY TIME 1 DAY?TOTAL DOSE 160 DAYS?THERAPY START DATE 02-MA
  72. CALCIDURAN [ASCORBIC ACID;CALCIUM PHOSPHATE;CITRIC ACID;COLECALCIFEROL [Concomitant]
     Indication: Product used for unknown indication
     Dosage: ONGOING = CHECKED?UNIT DOSE - 500 MG?THERAPY START DATE 17-JUL-2019?ROUTE OF ADMIN. ORAL
  73. NEURONTIN [Concomitant]
     Active Substance: GABAPENTIN
     Indication: Product used for unknown indication
     Dosage: 2 TIMES IN 1 DAY?FORM OF ADMIN. - TABLET (UNCOATED, ORAL)?300 MG?1 DAY?ROA-ORAL
     Route: 048
     Dates: start: 201908, end: 201908

REACTIONS (19)
  - COVID-19 [Recovered/Resolved]
  - Neutropenia [Recovered/Resolved]
  - Intracranial pressure increased [Recovered/Resolved]
  - Insomnia [Not Recovered/Not Resolved]
  - Iron deficiency anaemia [Recovered/Resolved]
  - Gamma-glutamyltransferase increased [Recovered/Resolved]
  - Pyrexia [Recovered/Resolved]
  - Vascular device infection [Recovered/Resolved]
  - Thrombocytopenia [Not Recovered/Not Resolved]
  - General physical health deterioration [Recovered/Resolved]
  - Asthenia [Recovered/Resolved]
  - Aphthous ulcer [Recovered/Resolved]
  - Blood bilirubin increased [Recovered/Resolved]
  - Diarrhoea [Recovered/Resolved]
  - Blood bilirubin increased [Recovered/Resolved]
  - COVID-19 [Recovered/Resolved]
  - Platelet count decreased [Recovered/Resolved]
  - Neutrophil count decreased [Recovered/Resolved]
  - COVID-19 [Recovered/Resolved]

NARRATIVE: CASE EVENT DATE: 20201228
